FAERS Safety Report 13740319 (Version 1)
Quarter: 2017Q3

REPORT INFORMATION
  Report Type: Spontaneous
  Country: DK (occurrence: DK)
  Receive Date: 20170711
  Receipt Date: 20170711
  Transmission Date: 20171127
  Serious: No
  Sender: FDA-Public Use
  Company Number: DK-MALLINCKRODT-T201701932

PATIENT
  Age: 75 Year
  Sex: Female

DRUGS (2)
  1. IOMERON [Suspect]
     Active Substance: IOMEPROL
     Indication: COMPUTERISED TOMOGRAM
     Dosage: 40 ML, QD
     Route: 065
     Dates: start: 20170119, end: 20170119
  2. TECHNESCAN MAG3 [Suspect]
     Active Substance: TECHNETIUM TC-99M TIATIDE
     Indication: RENAL SCAN
     Route: 042
     Dates: start: 20170120, end: 20170120

REACTIONS (3)
  - Rash maculo-papular [Recovered/Resolved]
  - Erythema [Recovered/Resolved]
  - Rash pruritic [Recovered/Resolved]

NARRATIVE: CASE EVENT DATE: 20170125
